FAERS Safety Report 5162725-2 (Version None)
Quarter: 2006Q4

REPORT INFORMATION
  Report Type: 
  Country: None (occurrence: None)
  Receive Date: 20061201
  Receipt Date: 20060522
  Transmission Date: 20070319
  Serious: No
  Sender: FDA-Public Use
  Company Number: US-GLAXOSMITHKLINE-A0606530A

PATIENT
  Age: 66 Year
  Sex: Female

DRUGS (4)
  1. AUGMENTIN XR [Suspect]
     Indication: COUGH
     Dosage: 2000MG TWICE PER DAY
     Route: 048
     Dates: start: 20060518, end: 20060521
  2. SYNTHROID [Concomitant]
  3. EVISTA [Concomitant]
  4. CRESTOR [Concomitant]

REACTIONS (1)
  - DIARRHOEA [None]
